FAERS Safety Report 9897255 (Version 2)
Quarter: 2014Q2

REPORT INFORMATION
  Report Type: Other
  Country: IN (occurrence: GB)
  Receive Date: 20140214
  Receipt Date: 20140415
  Transmission Date: 20141212
  Serious: Yes (Life-Threatening, Hospitalization)
  Sender: FDA-Public Use
  Company Number: IN-SUN PHARMACEUTICAL INDUSTRIES LTD-2014SUN00291

PATIENT
  Sex: 0

DRUGS (12)
  1. CARBOPLATIN 10 MG/ML CONCENTRATE FOR SOLUTION FOR INFUSION [Suspect]
     Indication: LUNG ADENOCARCINOMA
     Dosage: 490 MG, UNK
     Route: 042
     Dates: start: 20140110
  2. PARACETAMOL [Suspect]
     Indication: PAIN
     Dosage: 2 G, QID
     Route: 048
     Dates: start: 20140110
  3. PEMETREXED [Suspect]
     Dosage: UNK
     Dates: start: 20140110
  4. ALENDRONATE [Concomitant]
     Dosage: WITHDRAWN ON ADMISSION
  5. CORSODYL [Concomitant]
  6. CYCLIZINE [Concomitant]
  7. DEXAMETHASONE [Concomitant]
  8. LANSOPRAZOLE [Concomitant]
     Dosage: WITHDRAWN ON ADMISSION
  9. NYSTATIN [Concomitant]
  10. OXYCONTIN [Concomitant]
  11. OXYNORM [Concomitant]
  12. SIMVASTATIN [Concomitant]
     Dosage: WITHDRAWN ON ADMISSION

REACTIONS (9)
  - Acidosis [Unknown]
  - Renal failure acute [Not Recovered/Not Resolved]
  - Liver injury [Recovering/Resolving]
  - Urine output decreased [Unknown]
  - Jaundice [Unknown]
  - Diarrhoea [Unknown]
  - Neutropenia [Unknown]
  - Vomiting [Unknown]
  - Overdose [Unknown]
